FAERS Safety Report 9270895 (Version 2)
Quarter: 2014Q1

REPORT INFORMATION
  Report Type: Report from Study
  Country: DE (occurrence: DE)
  Receive Date: 20130505
  Receipt Date: 20140106
  Transmission Date: 20141002
  Serious: Yes (Other)
  Sender: FDA-Public Use
  Company Number: PHHY2013DE043053

PATIENT
  Sex: Female
  Weight: 109 kg

DRUGS (2)
  1. STI571 [Suspect]
     Indication: CHRONIC MYELOID LEUKAEMIA
     Dosage: 400 MG, QD
     Dates: start: 201003, end: 20120130
  2. AMN107 [Suspect]
     Indication: CHRONIC MYELOID LEUKAEMIA
     Dosage: 800 MG, PER DAY
     Dates: start: 20120131

REACTIONS (5)
  - Electrocardiogram QT prolonged [Recovered/Resolved]
  - Drug intolerance [Unknown]
  - Nausea [Unknown]
  - Drug resistance [Unknown]
  - Therapeutic response decreased [Unknown]
